FAERS Safety Report 16236953 (Version 1)
Quarter: 2019Q2

REPORT INFORMATION
  Report Type: Spontaneous
  Country: IT (occurrence: IT)
  Receive Date: 20190425
  Receipt Date: 20190425
  Transmission Date: 20190711
  Serious: Yes (Hospitalization)
  Sender: FDA-Public Use
  Company Number: IT-ACCORD-124085

PATIENT
  Age: 97 Year
  Sex: Female

DRUGS (8)
  1. TRAVATAN [Concomitant]
     Active Substance: TRAVOPROST
     Dosage: 40 MICROGRAMS/ML
  2. CLOPIDOGREL [Concomitant]
     Active Substance: CLOPIDOGREL BISULFATE
  3. QUENTIAX [Concomitant]
     Active Substance: QUETIAPINE FUMARATE
  4. TRITTICO [Concomitant]
     Active Substance: TRAZODONE HYDROCHLORIDE
  5. ZYLLT [Concomitant]
     Active Substance: CLOPIDOGREL BISULFATE
  6. FUROSEMIDE. [Suspect]
     Active Substance: FUROSEMIDE
     Indication: RENAL FAILURE
     Route: 048
     Dates: start: 20180101, end: 20180215
  7. BISOPROLOL [Concomitant]
     Active Substance: BISOPROLOL
  8. TALOFEN [Concomitant]
     Active Substance: PROMAZINE HYDROCHLORIDE

REACTIONS (3)
  - Hypokalaemia [Unknown]
  - Diarrhoea [Unknown]
  - Abdominal pain upper [Unknown]

NARRATIVE: CASE EVENT DATE: 20180214
